FAERS Safety Report 9633834 (Version 1)
Quarter: 2013Q4

REPORT INFORMATION
  Report Type: Spontaneous
  Country: US (occurrence: US)
  Receive Date: 20131021
  Receipt Date: 20131021
  Transmission Date: 20140711
  Serious: Yes (Other)
  Sender: FDA-Public Use
  Company Number: US-PFIZER INC-2013300401

PATIENT
  Age: 64 Year
  Sex: Female
  Weight: 77.1 kg

DRUGS (4)
  1. CHANTIX [Suspect]
     Indication: SMOKING CESSATION THERAPY
     Dosage: 0.5 MG, 1X/DAY
     Route: 048
     Dates: start: 20130625, end: 2013
  2. CHANTIX [Suspect]
     Dosage: UNK
     Route: 048
     Dates: start: 2013, end: 20130702
  3. HYDROCHLOROTHIAZIDE/LOSARTAN [Concomitant]
     Dosage: LOSARTAN 100MG/HYDROCHLOROTHIAZIDE 25MG, UNK
  4. NEXIUM [Concomitant]
     Dosage: UNK

REACTIONS (3)
  - Brain neoplasm [Unknown]
  - Blood calcium increased [Unknown]
  - Weight decreased [Unknown]
